FAERS Safety Report 5960357-7 (Version None)
Quarter: 2008Q4

REPORT INFORMATION
  Report Type: 
  Country: None (occurrence: None)
  Receive Date: 20081112
  Receipt Date: 20080827
  Transmission Date: 20090506
  Serious: Yes (Hospitalization)
  Sender: FDA-Public Use
  Company Number: 2008S1000299

PATIENT
  Sex: Male
  Weight: 85.9 kg

DRUGS (10)
  1. CUBICIN [Suspect]
     Indication: SKIN INFECTION
     Dosage: 6 MG/KG;Q24H;IV
     Route: 042
  2. INSULIN GLARGINE [Concomitant]
  3. LOVASTATIN [Concomitant]
  4. METFORMIN HCL [Concomitant]
  5. ALLOPURINOL [Concomitant]
  6. AMITRIPTYLINE HCL [Concomitant]
  7. ZOLPIDEM [Concomitant]
  8. CLONIDINE HCL [Concomitant]
  9. FOSINOPRIL SODIUM [Concomitant]
  10. VANCOMYCIN [Concomitant]

REACTIONS (2)
  - BACTERAEMIA [None]
  - PSEUDOMEMBRANOUS COLITIS [None]
